FAERS Safety Report 18928412 (Version 6)
Quarter: 2021Q3

REPORT INFORMATION
  Report Type: Spontaneous
  Country: FR (occurrence: FR)
  Receive Date: 20210223
  Receipt Date: 20210719
  Transmission Date: 20211014
  Serious: Yes (Hospitalization)
  Sender: FDA-Public Use
  Company Number: NVSC2021FR032597

PATIENT
  Age: 26 Year
  Sex: Female

DRUGS (4)
  1. PARACETAMOL [Suspect]
     Active Substance: ACETAMINOPHEN
     Indication: PRODUCT USED FOR UNKNOWN INDICATION
     Dosage: UNK, UNKNOWN
     Route: 065
  2. ESOMEPRAZOLE. [Suspect]
     Active Substance: ESOMEPRAZOLE MAGNESIUM
     Indication: PRODUCT USED FOR UNKNOWN INDICATION
     Dosage: UNK, UNKNOWN
     Route: 065
  3. ALMOTRIPTAN. [Suspect]
     Active Substance: ALMOTRIPTAN
     Dosage: UNK (MORE THAN 2 PILLS PER WEEK, WITH SEVERAL DAYS OF DAILY ADMINISTRATIONS)(AT LEAST 2 PILLS OF ALM
     Route: 048
  4. ALMOTRIPTAN. [Suspect]
     Active Substance: ALMOTRIPTAN
     Indication: MIGRAINE WITH AURA
     Dosage: 12.5 MG (MISUSE BY CONSUMING MORE THAN 2 PILLS/WEEK,SEVERAL DAYS OF DAILY ADMINISTRATIONS)
     Route: 048

REACTIONS (2)
  - Premature delivery [Unknown]
  - Maternal exposure during pregnancy [Unknown]
